FAERS Safety Report 8270184-6 (Version None)
Quarter: 2012Q2

REPORT INFORMATION
  Report Type: 
  Country: None (occurrence: None)
  Receive Date: 20120410
  Receipt Date: 20120406
  Transmission Date: 20120825
  Serious: Yes (Life-Threatening, Hospitalization)
  Sender: FDA-Public Use
  Company Number: PHHY2012BE018269

PATIENT
  Sex: Female

DRUGS (10)
  1. CLOZAPINE [Suspect]
     Dates: end: 20120223
  2. SEROQUEL [Concomitant]
     Dosage: 300 MG, DAILY
  3. LORAZEPAM [Concomitant]
     Dosage: 2.5 MG, QID (4 TIMES DAILY)
  4. CLOZAPINE [Suspect]
     Dosage: 100 MG, DAILY
     Dates: start: 20120220
  5. CLOZAPINE [Suspect]
     Dosage: 50 MG, DAILY DURING 3 DAYS
  6. ABILIFY [Concomitant]
     Dosage: 30 MG, DAILY
  7. ASPIRIN [Concomitant]
     Dosage: 80 MG, DAILY
  8. LITHIUM CARBONATE [Concomitant]
     Dosage: 250 MG, BID
  9. CLOZAPINE [Suspect]
     Indication: AFFECTIVE DISORDER
     Dosage: 25 MG, DAILY (DURING 2 WEEKS)
     Dates: start: 20120126
  10. CLOZAPINE [Suspect]
     Dosage: 75 MG, DURING 3 DAYS

REACTIONS (28)
  - DYSPNOEA [None]
  - ERYTHEMA MULTIFORME [None]
  - CARDIOMEGALY [None]
  - LUNG DISORDER [None]
  - TRICUSPID VALVE INCOMPETENCE [None]
  - PERICARDIAL EFFUSION [None]
  - PULMONARY EMBOLISM [None]
  - RHABDOMYOLYSIS [None]
  - BLOOD CREATINE PHOSPHOKINASE INCREASED [None]
  - EPILEPSY [None]
  - ELECTROENCEPHALOGRAM ABNORMAL [None]
  - C-REACTIVE PROTEIN INCREASED [None]
  - HYPOTENSION [None]
  - RENAL FAILURE [None]
  - GENERAL PHYSICAL HEALTH DETERIORATION [None]
  - ELECTROCARDIOGRAM PR SHORTENED [None]
  - ASTHENIA [None]
  - MALAISE [None]
  - COUGH [None]
  - HYPOXIA [None]
  - BLOOD CREATININE INCREASED [None]
  - PLEURAL EFFUSION [None]
  - PULMONARY HYPERTENSION [None]
  - ELECTROCARDIOGRAM ABNORMAL [None]
  - SYSTEMIC INFLAMMATORY RESPONSE SYNDROME [None]
  - PERIPHERAL EMBOLISM [None]
  - RASH [None]
  - DIARRHOEA [None]
